FAERS Safety Report 18308192 (Version 1)
Quarter: 2020Q3

REPORT INFORMATION
  Report Type: Spontaneous
  Country: ES (occurrence: ES)
  Receive Date: 20200924
  Receipt Date: 20200924
  Transmission Date: 20201103
  Serious: Yes (Other)
  Sender: FDA-Public Use
  Company Number: ICHICSR-EVHUMAN-20200825083957_UZKMRN

PATIENT
  Age: 24 Year
  Sex: Male
  Weight: 57 kg

DRUGS (2)
  1. ENVARSUS XR [Suspect]
     Active Substance: TACROLIMUS
     Dosage: 0.5 MILLIGRAM, Q12H
     Route: 048
     Dates: start: 2020
  2. ENVARSUS XR [Suspect]
     Active Substance: TACROLIMUS
     Indication: PROPHYLAXIS AGAINST GRAFT VERSUS HOST DISEASE
     Dosage: 0.5 MG, Q12H
     Route: 048
     Dates: start: 20191014

REACTIONS (2)
  - Off label use [Unknown]
  - Hepatocellular injury [Recovered/Resolved]

NARRATIVE: CASE EVENT DATE: 20191223
